FAERS Safety Report 4394102-6 (Version None)
Quarter: 2004Q3

REPORT INFORMATION
  Report Type: 
  Country: None (occurrence: None)
  Receive Date: 20040708
  Receipt Date: 20040708
  Transmission Date: 20050211
  Serious: Yes (Hospitalization)
  Sender: FDA-Public Use
  Company Number: None

PATIENT
  Age: 71 Year
  Sex: Female
  Weight: 78.4723 kg

DRUGS (9)
  1. REOPRO [Suspect]
     Indication: CATHETERISATION CARDIAC
     Dosage: SEE BELOW (IMAGE) ONCE INTRAVENOUS
     Route: 042
     Dates: start: 20040317, end: 20040318
  2. ANGIOMAX [Suspect]
     Indication: CATHETERISATION CARDIAC
     Dosage: SEE BELOW (IMAGE) ONCE INTRAVENOUS
     Route: 042
     Dates: start: 20040317, end: 20040317
  3. CLOPIDOGREL [Concomitant]
  4. ASPIRIN [Concomitant]
  5. LOSARTAN POTASSIUM [Concomitant]
  6. LEVOFLOXACIN [Concomitant]
  7. GLYBURIDE [Concomitant]
  8. NICOTINE [Concomitant]
  9. ATENOLOL [Concomitant]

REACTIONS (2)
  - GASTROINTESTINAL HAEMORRHAGE [None]
  - THROMBOCYTOPENIA [None]
